FAERS Safety Report 7897683-0 (Version None)
Quarter: 2011Q4

REPORT INFORMATION
  Report Type: 
  Country: None (occurrence: None)
  Receive Date: 20111107
  Receipt Date: 20101115
  Transmission Date: 20120403
  Serious: No
  Sender: FDA-Public Use
  Company Number: US-BAYER-201041536NA

PATIENT
  Age: 44 Year
  Sex: Female

DRUGS (2)
  1. CLIMARA [Suspect]
     Indication: HYSTERECTOMY
     Dosage: 0.1 MG, QD
     Route: 062
     Dates: start: 20101112, end: 20101114
  2. CLIMARA [Suspect]
     Indication: OOPHORECTOMY BILATERAL

REACTIONS (2)
  - NAUSEA [None]
  - DECREASED APPETITE [None]
